FAERS Safety Report 20832508 (Version 1)
Quarter: 2022Q2

REPORT INFORMATION
  Report Type: 
  Country: None (occurrence: None)
  Receive Date: 20220516
  Receipt Date: 20220516
  Transmission Date: 20220721
  Serious: No
  Sender: FDA-Public Use
  Company Number: US-ROCHE-3090414

PATIENT
  Age: 34 Year

DRUGS (3)
  1. OCREVUS [Suspect]
     Active Substance: OCRELIZUMAB
     Dosage: 300 MG AT DAY 0 AND 15
     Dates: start: 20210317, end: 20210930
  2. PREGABALIN [Concomitant]
     Active Substance: PREGABALIN
  3. DULOXETINE [Concomitant]
     Active Substance: DULOXETINE

REACTIONS (5)
  - COVID-19 [None]
  - Neuropathy peripheral [None]
  - Bronchitis [None]
  - Pyelonephritis [None]
  - Anxiety [None]

NARRATIVE: CASE EVENT DATE: 20220101
